FAERS Safety Report 8737899 (Version 4)
Quarter: 2013Q4

REPORT INFORMATION
  Report Type: Spontaneous
  Country: JP (occurrence: JP)
  Receive Date: 20120823
  Receipt Date: 20131105
  Transmission Date: 20140711
  Serious: Yes (Life-Threatening, Hospitalization)
  Sender: FDA-Public Use
  Company Number: JP-009507513-1208JPN004716

PATIENT
  Age: 60 Year
  Sex: Male

DRUGS (2)
  1. DECADRON PHOSPHATE INJECTION [Suspect]
     Indication: PLASMA CELL MYELOMA
  2. BORTEZOMIB [Suspect]
     Indication: PLASMA CELL MYELOMA
     Route: 042

REACTIONS (2)
  - Enteritis infectious [Recovered/Resolved]
  - Melaena [Recovered/Resolved]
